FAERS Safety Report 6855839-X (Version None)
Quarter: 2010Q3

REPORT INFORMATION
  Report Type: 
  Country: None (occurrence: None)
  Receive Date: 20100719
  Receipt Date: 20100706
  Transmission Date: 20110219
  Serious: Yes (Hospitalization)
  Sender: FDA-Public Use
  Company Number: FR-SANOFI-AVENTIS-200612882FR

PATIENT
  Sex: Female
  Weight: 60 kg

DRUGS (7)
  1. LEFLUNOMIDE [Suspect]
     Indication: RHEUMATOID ARTHRITIS
     Dosage: DOSE UNIT: 20 MG
     Route: 048
     Dates: start: 20011210, end: 20021215
  2. LEFLUNOMIDE [Suspect]
     Dosage: DOSE UNIT: 10 MG
     Route: 048
     Dates: start: 20020201, end: 20050201
  3. LEFLUNOMIDE [Suspect]
     Route: 048
     Dates: start: 20051001
  4. REMICADE [Suspect]
     Indication: RHEUMATOID ARTHRITIS
     Dosage: DOSE UNIT: 100 MG
     Route: 041
     Dates: start: 20020206, end: 20050201
  5. REMICADE [Suspect]
     Route: 041
     Dates: start: 20051001
  6. NOVATREX ^LEDERLE^ [Suspect]
     Indication: RHEUMATOID ARTHRITIS
     Dosage: DOSE UNIT: 2.5 MG
     Route: 048
     Dates: end: 20020201
  7. ETANERCEPT [Suspect]
     Indication: RHEUMATOID ARTHRITIS
     Dates: start: 20050101, end: 20050101

REACTIONS (9)
  - CONFUSIONAL STATE [None]
  - DYSARTHRIA [None]
  - HEADACHE [None]
  - HEMIPLEGIA [None]
  - ISCHAEMIC STROKE [None]
  - MENINGITIS TUBERCULOUS [None]
  - PYREXIA [None]
  - SOMNOLENCE [None]
  - VOMITING [None]
